FAERS Safety Report 8444115-X (Version None)
Quarter: 2012Q2

REPORT INFORMATION
  Report Type: 
  Country: None (occurrence: None)
  Receive Date: 20120323
  Receipt Date: 20110525
  Transmission Date: 20120825
  Serious: Yes (Hospitalization, Other)
  Sender: FDA-Public Use
  Company Number: 163-21880-11053359

PATIENT
  Age: 74 Year
  Sex: Female
  Weight: 40.3701 kg

DRUGS (2)
  1. REVLIMID [Suspect]
     Indication: MULTIPLE MYELOMA
     Dosage: 10 MG, DAILY X 21 DAYS, PO
     Route: 048
     Dates: start: 20100512, end: 20110501
  2. OXYCODONE (OXYCODONE) (UNKNOWN) [Concomitant]

REACTIONS (4)
  - BACK PAIN [None]
  - DEHYDRATION [None]
  - WHITE BLOOD CELL COUNT DECREASED [None]
  - PLATELET COUNT DECREASED [None]
